FAERS Safety Report 4617547-5 (Version None)
Quarter: 2005Q1

REPORT INFORMATION
  Report Type: 
  Country: None (occurrence: None)
  Receive Date: 20050315
  Receipt Date: 20050225
  Transmission Date: 20050727
  Serious: Yes (Other)
  Sender: FDA-Public Use
  Company Number: 602023

PATIENT
  Sex: Male

DRUGS (10)
  1. HEMOFIL [Suspect]
     Indication: FACTOR VIII DEFICIENCY
  2. FACTOR IX COMPLEX [Suspect]
     Indication: FACTOR VIII DEFICIENCY
  3. FACTOR VIII BAYER (UNCODED) [Suspect]
     Indication: FACTOR VIII DEFICIENCY
  4. FACTOR IX COMPLEX [Suspect]
     Indication: FACTOR VIII DEFICIENCY
  5. FACTOR VIII ARMOUR (UNCODED) [Suspect]
     Indication: FACTOR VIII DEFICIENCY
  6. FACTOR IX COMPLEX [Suspect]
     Indication: FACTOR VIII DEFICIENCY
  7. FACTOR VIII AVENTIS (UNCODED) [Suspect]
     Indication: FACTOR VIII DEFICIENCY
  8. FACTOR IX COMPLEX [Suspect]
     Indication: FACTOR VIII DEFICIENCY
  9. FACTOR VIII ALPHA (UNCODED) [Suspect]
  10. FACTOR IX COMPLEX [Suspect]
     Indication: FACTOR VIII DEFICIENCY

REACTIONS (2)
  - HEPATITIS C [None]
  - HIV TEST POSITIVE [None]
